FAERS Safety Report 16060115 (Version 1)
Quarter: 2019Q1

REPORT INFORMATION
  Report Type: Spontaneous
  Country: US (occurrence: US)
  Receive Date: 20190312
  Receipt Date: 20190312
  Transmission Date: 20190418
  Serious: No
  Sender: FDA-Public Use
  Company Number: US-LUPIN PHARMACEUTICALS INC.-2018-08580

PATIENT
  Sex: Female

DRUGS (1)
  1. QUETIAPINE FUMARATE EXTENDED-RELEASE TABLETS, 150 MG [Suspect]
     Active Substance: QUETIAPINE FUMARATE
     Indication: INSOMNIA
     Dosage: UNK, 3 HOURS BEFORE BEDTIME
     Route: 065

REACTIONS (2)
  - Insomnia [Unknown]
  - Drug ineffective for unapproved indication [Unknown]
